FAERS Safety Report 10408987 (Version 1)
Quarter: 2014Q3

REPORT INFORMATION
  Report Type: Spontaneous
  Country: IT (occurrence: None)
  Receive Date: 20140822
  Receipt Date: 20140822
  Transmission Date: 20150326
  Serious: Yes (Hospitalization, Other)
  Sender: FDA-Public Use
  Company Number: 2014AP004072

PATIENT
  Age: 83 Year
  Sex: Female

DRUGS (5)
  1. CITALOPRAM (CITALOPRAM) [Concomitant]
     Active Substance: CITALOPRAM HYDROBROMIDE
  2. ATORVASTATIN (ATORVASTATIN) TABLET [Suspect]
     Active Substance: ATORVASTATIN
     Indication: HYPERCHOLESTEROLAEMIA
     Dates: start: 20140701, end: 20140713
  3. BLOPRESID (CANDESARTAN CILEXETIL, HYDROCHLOROTHIAZIDE) [Concomitant]
  4. LASIX /00032601/ (FUROSEMIDE) [Concomitant]
  5. CARDIOASPIRIN (ACETYLSALICYLIC ACID) [Concomitant]
     Active Substance: ASPIRIN

REACTIONS (4)
  - Akathisia [None]
  - Rhabdomyolysis [None]
  - Psychomotor hyperactivity [None]
  - Disorientation [None]

NARRATIVE: CASE EVENT DATE: 20140713
